FAERS Safety Report 14513667 (Version 2)
Quarter: 2018Q2

REPORT INFORMATION
  Report Type: Spontaneous
  Country: FR (occurrence: FR)
  Receive Date: 20180209
  Receipt Date: 20180420
  Transmission Date: 20180711
  Serious: Yes (Hospitalization)
  Sender: FDA-Public Use
  Company Number: FR-PFIZER INC-2018053449

PATIENT
  Age: 42 Year
  Sex: Female
  Weight: 67 kg

DRUGS (3)
  1. CISPLATINE TEVA [Suspect]
     Active Substance: CISPLATIN
     Indication: UTERINE CANCER
     Dosage: 73.2 MG, UNK
     Route: 042
     Dates: start: 20170306
  2. ONDANSETRON [Suspect]
     Active Substance: ONDANSETRON
     Indication: UTERINE CANCER
     Dosage: 8 MG, UNK
     Route: 042
     Dates: start: 20170306
  3. METHYLPREDNISOLONE SODIUM SUCCINATE. [Suspect]
     Active Substance: METHYLPREDNISOLONE SODIUM SUCCINATE
     Indication: UTERINE CANCER
     Dosage: 120 MG, UNK
     Route: 042
     Dates: start: 20170306

REACTIONS (7)
  - Leukopenia [Recovered/Resolved]
  - Diarrhoea [Recovered/Resolved]
  - Abdominal pain [Recovered/Resolved]
  - Product use in unapproved indication [Unknown]
  - Tinnitus [Recovered/Resolved]
  - Vertigo [Recovered/Resolved]
  - Alopecia [Not Recovered/Not Resolved]

NARRATIVE: CASE EVENT DATE: 20170306
